FAERS Safety Report 9998935 (Version 2)
Quarter: 2014Q2

REPORT INFORMATION
  Report Type: Spontaneous
  Country: FR (occurrence: None)
  Receive Date: 20140310
  Receipt Date: 20140516
  Transmission Date: 20141212
  Serious: Yes (Death)
  Sender: FDA-Public Use
  Company Number: B0973081A

PATIENT
  Age: 50 Year
  Sex: Female

DRUGS (8)
  1. PAROXETINE HYDROCHLORIDE [Suspect]
     Indication: MAJOR DEPRESSION
     Route: 048
     Dates: end: 20130418
  2. MARAVIROC [Suspect]
     Indication: HIV TEST POSITIVE
     Route: 048
     Dates: start: 20100622, end: 20130418
  3. DARUNAVIR [Suspect]
     Indication: HIV TEST POSITIVE
     Dates: start: 20121218, end: 20130307
  4. RITONAVIR [Suspect]
     Indication: HIV TEST POSITIVE
     Route: 048
     Dates: start: 20121218, end: 20130418
  5. ARIPIPRAZOLE [Suspect]
     Indication: MAJOR DEPRESSION
     Dates: start: 20130313, end: 20130412
  6. RISPERIDONE [Suspect]
     Indication: MAJOR DEPRESSION
     Dosage: 7 DAYS.
     Route: 048
     Dates: start: 20130412, end: 20130418
  7. TENOFOVIR DISOPROXIL FUMA [Suspect]
     Indication: HIV TEST POSITIVE
     Dosage: PO.
     Dates: start: 20100622, end: 20130418
  8. SAQUINAVIR [Suspect]
     Indication: HIV TEST POSITIVE
     Route: 048
     Dates: start: 20130307, end: 20130418

REACTIONS (5)
  - Major depression [None]
  - Suicidal ideation [None]
  - Anxiety [None]
  - Malaise [None]
  - Completed suicide [None]
